FAERS Safety Report 9823276 (Version 2)
Quarter: 2014Q3

REPORT INFORMATION
  Report Type: Spontaneous
  Country: US (occurrence: US)
  Receive Date: 20140116
  Receipt Date: 20140815
  Transmission Date: 20150326
  Serious: Yes (Hospitalization, Other)
  Sender: FDA-Public Use
  Company Number: US-009507513-1401USA007000

PATIENT
  Sex: Female
  Weight: 63.95 kg

DRUGS (1)
  1. NUVARING [Suspect]
     Active Substance: ETHINYL ESTRADIOL\ETONOGESTREL
     Dosage: UNK
     Route: 067
     Dates: start: 20071126, end: 20091028

REACTIONS (7)
  - Anxiety [Unknown]
  - Hypothyroidism [Unknown]
  - Asthma [Unknown]
  - Pulmonary mass [Unknown]
  - Peripheral artery thrombosis [Unknown]
  - Pulmonary embolism [Unknown]
  - Pulmonary embolism [Unknown]

NARRATIVE: CASE EVENT DATE: 20091001
